FAERS Safety Report 8949220 (Version 2)
Quarter: 2013Q1

REPORT INFORMATION
  Report Type: Spontaneous
  Country: US (occurrence: US)
  Receive Date: 20121206
  Receipt Date: 20130301
  Transmission Date: 20140127
  Serious: Yes (Hospitalization, Other)
  Sender: FDA-Public Use
  Company Number: US-JNJFOC-20121114333

PATIENT
  Age: 46 Year
  Sex: Female
  Weight: 75.3 kg

DRUGS (21)
  1. REMICADE [Suspect]
     Indication: CROHN^S DISEASE
     Route: 042
     Dates: start: 20030326
  2. REMICADE [Suspect]
     Indication: CROHN^S DISEASE
     Route: 042
     Dates: start: 20121227
  3. REMICADE [Suspect]
     Indication: CROHN^S DISEASE
     Route: 042
     Dates: end: 20111228
  4. REMICADE [Suspect]
     Indication: CROHN^S DISEASE
     Dosage: TOTAL NUMBER OF INFUSION APPROXIMATELY 88
     Route: 042
     Dates: end: 20130215
  5. REMICADE [Suspect]
     Indication: CROHN^S DISEASE
     Route: 042
     Dates: start: 2004
  6. REMICADE [Suspect]
     Indication: CROHN^S DISEASE
     Route: 042
     Dates: start: 2002
  7. L GLUTAMINE [Concomitant]
     Route: 065
  8. VITAMIN  D [Concomitant]
     Dosage: HIGH DOSE
     Route: 065
  9. CLOTRIMAZOLE [Concomitant]
     Indication: COLITIS ULCERATIVE
     Route: 048
  10. PREDNISONE [Concomitant]
     Indication: COLITIS ULCERATIVE
     Route: 065
     Dates: start: 2003
  11. PREDNISONE [Concomitant]
     Indication: COLITIS ULCERATIVE
     Route: 065
     Dates: start: 2002
  12. FOLIC ACID [Concomitant]
     Indication: THYROIDECTOMY
     Route: 048
     Dates: start: 2002
  13. SYNTHROID [Concomitant]
     Indication: HYPOTHYROIDISM
     Route: 065
  14. PREVACID [Concomitant]
     Indication: GASTROOESOPHAGEAL REFLUX DISEASE
     Route: 048
     Dates: start: 2002
  15. IRON [Concomitant]
     Indication: IRON DEFICIENCY ANAEMIA
     Route: 065
     Dates: start: 2002
  16. MULTIVITAMINES [Concomitant]
     Route: 065
     Dates: start: 2005
  17. IMURAN [Concomitant]
     Route: 065
  18. IMURAN [Concomitant]
     Route: 065
     Dates: start: 2004, end: 2008
  19. HYDROCHLOROTHIAZIDE [Concomitant]
     Route: 065
  20. ZYRTEC [Concomitant]
     Indication: PREMEDICATION
     Route: 065
  21. FAMOTIDINE [Concomitant]
     Indication: PREMEDICATION
     Route: 065

REACTIONS (7)
  - Abscess [Unknown]
  - Appendix cancer [Recovered/Resolved]
  - Arthritis enteropathic [Not Recovered/Not Resolved]
  - Thyroid disorder [Not Recovered/Not Resolved]
  - Colectomy [Unknown]
  - Abdominal wall operation [Unknown]
  - Appendicitis [Unknown]
